FAERS Safety Report 7958387-9 (Version None)
Quarter: 2011Q4

REPORT INFORMATION
  Report Type: 
  Country: None (occurrence: None)
  Receive Date: 20111205
  Receipt Date: 20111129
  Transmission Date: 20120403
  Serious: Yes (Disabling)
  Sender: FDA-Public Use
  Company Number: US-MERCK-1104USA02997

PATIENT
  Age: 21 Year
  Sex: Male

DRUGS (1)
  1. PROPECIA [Suspect]
     Indication: ANDROGENETIC ALOPECIA
     Route: 048
     Dates: start: 20090101, end: 20090101

REACTIONS (21)
  - DEPRESSION [None]
  - FAECES DISCOLOURED [None]
  - DISTURBANCE IN ATTENTION [None]
  - GENITAL HYPOAESTHESIA [None]
  - DYSURIA [None]
  - ERECTILE DYSFUNCTION [None]
  - HYPERVENTILATION [None]
  - MUSCLE DISORDER [None]
  - GASTRIC DISORDER [None]
  - EMOTIONAL DISTRESS [None]
  - HYPOTHYROIDISM [None]
  - EJACULATION FAILURE [None]
  - EJACULATION DISORDER [None]
  - ANXIETY [None]
  - MEMORY IMPAIRMENT [None]
  - VISION BLURRED [None]
  - MENTAL DISORDER [None]
  - DISTURBANCE IN SOCIAL BEHAVIOUR [None]
  - LOSS OF LIBIDO [None]
  - SEXUAL DYSFUNCTION [None]
  - FATIGUE [None]
